FAERS Safety Report 6810365-9 (Version None)
Quarter: 2010Q2

REPORT INFORMATION
  Report Type: 
  Country: None (occurrence: None)
  Receive Date: 20100630
  Receipt Date: 20100625
  Transmission Date: 20101027
  Serious: Yes (Life-Threatening, Hospitalization, Other)
  Sender: FDA-Public Use
  Company Number: JP-JNJFOC-20100608283

PATIENT
  Age: 70 Year
  Sex: Male

DRUGS (7)
  1. RISPERDAL [Suspect]
     Indication: DRUG USE FOR UNKNOWN INDICATION
     Route: 048
  2. RISPERDAL [Suspect]
     Route: 048
  3. QUETIAPINE FUMARATE [Suspect]
     Indication: DRUG USE FOR UNKNOWN INDICATION
     Dosage: 300 (UNIT NOT SPECIFIED)
     Route: 048
  4. CREMIN [Concomitant]
     Route: 048
  5. AKINETON [Concomitant]
     Route: 065
  6. MAGNESIUM OXIDE [Concomitant]
     Route: 048
  7. ROHYPNOL [Concomitant]
     Route: 065

REACTIONS (7)
  - BENIGN PROSTATIC HYPERPLASIA [None]
  - DIET REFUSAL [None]
  - PERSECUTORY DELUSION [None]
  - PULMONARY EMBOLISM [None]
  - PYREXIA [None]
  - RENAL FAILURE ACUTE [None]
  - RHABDOMYOLYSIS [None]
